FAERS Safety Report 8612710 (Version 6)
Quarter: 2014Q1

REPORT INFORMATION
  Report Type: Report from Study
  Country: US (occurrence: US)
  Receive Date: 20120613
  Receipt Date: 20140225
  Transmission Date: 20141002
  Serious: Yes (Hospitalization)
  Sender: FDA-Public Use
  Company Number: US-BRISTOL-MYERS SQUIBB COMPANY-16551434

PATIENT
  Age: 54 Year
  Sex: Female

DRUGS (7)
  1. NIVOLUMAB [Suspect]
     Indication: MALIGNANT MELANOMA
     Dosage: 3 MG/KG ?INTERR ON 02APR12
     Route: 042
     Dates: start: 20120402
  2. IPILIMUMAB [Suspect]
     Indication: MALIGNANT MELANOMA
     Dosage: 3 MG/KG
     Route: 042
     Dates: start: 20120402
  3. CELEXA [Concomitant]
     Indication: DEPRESSION
     Route: 048
     Dates: start: 200401
  4. MULTIVITAMIN [Concomitant]
     Indication: VITAMIN SUPPLEMENTATION
     Dosage: 1DF=1 TAB
     Route: 048
     Dates: start: 198201
  5. ZOFRAN [Concomitant]
     Indication: NAUSEA
     Route: 042
     Dates: start: 20120424, end: 20120424
  6. PROPANOL [Concomitant]
     Indication: HYPERTHYROIDISM
     Route: 048
     Dates: start: 20120419, end: 20120519
  7. TYLENOL [Concomitant]
     Indication: PYREXIA
     Dosage: PRN
     Route: 048
     Dates: start: 20120506

REACTIONS (4)
  - Hyperthyroidism [Recovered/Resolved]
  - Hypotension [Recovered/Resolved]
  - Viral infection [Recovered/Resolved]
  - Lipase increased [Recovered/Resolved]
